FAERS Safety Report 23622370 (Version 2)
Quarter: 2024Q1

REPORT INFORMATION
  Report Type: Spontaneous
  Country: DE (occurrence: DE)
  Receive Date: 20240312
  Receipt Date: 20240314
  Transmission Date: 20240410
  Serious: Yes (Life-Threatening, Hospitalization, Other)
  Sender: FDA-Public Use
  Company Number: DE-SANDOZ-SDZ2024DE020289

PATIENT
  Age: 66 Year
  Sex: Male

DRUGS (2)
  1. PANTOPRAZOLE [Suspect]
     Active Substance: PANTOPRAZOLE
     Dosage: UNK
     Route: 065
  2. INCLISIRAN [Suspect]
     Active Substance: INCLISIRAN
     Indication: Myopathy
     Dosage: UNK
     Route: 065

REACTIONS (2)
  - Hepatic fibrosis [Recovering/Resolving]
  - Disease progression [Recovering/Resolving]
